FAERS Safety Report 7456686-0 (Version None)
Quarter: 2011Q2

REPORT INFORMATION
  Report Type: 
  Country: None (occurrence: None)
  Receive Date: 20110503
  Receipt Date: 20100505
  Transmission Date: 20111010
  Serious: No
  Sender: FDA-Public Use
  Company Number: US-SANOFI-AVENTIS-2010SA027639

PATIENT
  Age: 51 Year
  Sex: Female

DRUGS (2)
  1. OPTICLICK [Suspect]
  2. APIDRA [Suspect]
     Dosage: DOSE:6 UNIT(S)
     Route: 058
     Dates: start: 20060101

REACTIONS (3)
  - BLOOD GLUCOSE INCREASED [None]
  - FATIGUE [None]
  - DRUG DOSE OMISSION [None]
